FAERS Safety Report 4914852-X (Version None)
Quarter: 2006Q1

REPORT INFORMATION
  Report Type: 
  Country: None (occurrence: None)
  Receive Date: 20060217
  Receipt Date: 20060209
  Transmission Date: 20060701
  Serious: Yes (Other)
  Sender: FDA-Public Use
  Company Number: US-JNJFOC-20060202600

PATIENT
  Sex: Male
  Weight: 18.14 kg

DRUGS (4)
  1. CONCENTRATED MOTRIN INFANTS' BERRY [Suspect]
  2. CONCENTRATED MOTRIN INFANTS' BERRY [Suspect]
     Dosage: 2 DROPPERS, 1 IN 1 TOTAL
  3. CONCENTRATED TYLENOL INFANTS' CHERRY [Suspect]
  4. CONCENTRATED TYLENOL INFANTS' CHERRY [Suspect]

REACTIONS (3)
  - EYELID OEDEMA [None]
  - SWELLING FACE [None]
  - URTICARIA [None]
